FAERS Safety Report 9743781 (Version 2)
Quarter: 2013Q4

REPORT INFORMATION
  Report Type: Report from Study
  Country: MY (occurrence: MY)
  Receive Date: 20131210
  Receipt Date: 20131212
  Transmission Date: 20140711
  Serious: Yes (Death)
  Sender: FDA-Public Use
  Company Number: PHHY2013MY144192

PATIENT
  Sex: Male

DRUGS (4)
  1. GLIVEC [Suspect]
     Indication: CHRONIC MYELOID LEUKAEMIA
     Dosage: 400 MG, UNK
  2. GLICLAZIDE [Concomitant]
     Dosage: 40 MG, BID
  3. ALFUZOSINE [Concomitant]
     Dosage: 10 MG, QD
  4. FINASTERIDE [Concomitant]
     Dosage: 5 MG, QD

REACTIONS (1)
  - Death [Fatal]
